FAERS Safety Report 5833662-2 (Version None)
Quarter: 2008Q3

REPORT INFORMATION
  Report Type: 
  Country: None (occurrence: None)
  Receive Date: 20080805
  Receipt Date: 20080725
  Transmission Date: 20090109
  Serious: Yes (Hospitalization, Other)
  Sender: FDA-Public Use
  Company Number: JP-ASTRAZENECA-2008AP05610

PATIENT
  Age: 31 Year
  Sex: Female

DRUGS (7)
  1. SEROQUEL [Suspect]
     Route: 048
  2. MYSLEE [Suspect]
     Route: 048
  3. ZYPREXA [Concomitant]
     Route: 048
  4. AMOBAN [Concomitant]
     Route: 048
  5. UPAN [Concomitant]
     Route: 048
  6. DEPAS [Concomitant]
     Route: 048
  7. LANDSEN [Concomitant]
     Route: 048

REACTIONS (2)
  - OVERDOSE [None]
  - SUICIDE ATTEMPT [None]
